FAERS Safety Report 9685409 (Version 2)
Quarter: 2013Q4

REPORT INFORMATION
  Report Type: Spontaneous
  Country: BR (occurrence: BR)
  Receive Date: 20131113
  Receipt Date: 20131113
  Transmission Date: 20140711
  Serious: Yes (Hospitalization)
  Sender: FDA-Public Use
  Company Number: BR-JNJFOC-20130905425

PATIENT
  Age: 25 Year
  Sex: Female

DRUGS (4)
  1. XARELTO [Suspect]
     Indication: THROMBOSIS PROPHYLAXIS
     Route: 048
     Dates: end: 2013
  2. XARELTO [Suspect]
     Indication: THROMBOSIS PROPHYLAXIS
     Route: 048
  3. XARELTO [Suspect]
     Indication: DEEP VEIN THROMBOSIS
     Route: 048
     Dates: end: 2013
  4. XARELTO [Suspect]
     Indication: DEEP VEIN THROMBOSIS
     Route: 048

REACTIONS (3)
  - Drug ineffective [Recovering/Resolving]
  - Drug ineffective [Unknown]
  - Incorrect dose administered [Unknown]
